FAERS Safety Report 8995864 (Version 1)
Quarter: 2013Q1

REPORT INFORMATION
  Report Type: Report from Study
  Country: US (occurrence: US)
  Receive Date: 20130103
  Receipt Date: 20130103
  Transmission Date: 20140127
  Serious: Yes (Hospitalization)
  Sender: FDA-Public Use
  Company Number: US-JNJFOC-20121015841

PATIENT
  Age: 16 Year
  Sex: Female
  Weight: 46.7 kg

DRUGS (1)
  1. REMICADE [Suspect]
     Indication: INFLAMMATORY BOWEL DISEASE
     Route: 042
     Dates: start: 20090615

REACTIONS (2)
  - Inflammatory bowel disease [Recovered/Resolved]
  - Weight decreased [Not Recovered/Not Resolved]
